FAERS Safety Report 7218782-2 (Version None)
Quarter: 2011Q1

REPORT INFORMATION
  Report Type: 
  Country: None (occurrence: None)
  Receive Date: 20110110
  Receipt Date: 20100610
  Transmission Date: 20110831
  Serious: No
  Sender: FDA-Public Use
  Company Number: US-ABBOTT-10P-163-0646394-00

PATIENT
  Sex: Female
  Weight: 90.8 kg

DRUGS (2)
  1. VOLTAREN [Suspect]
     Indication: ARTHRITIS
     Dates: start: 20100514
  2. VICODIN [Suspect]
     Indication: ARTHRALGIA
     Dosage: 5 MG/500 MG
     Dates: start: 20100506

REACTIONS (4)
  - VOMITING [None]
  - CONSTIPATION [None]
  - NAUSEA [None]
  - ABDOMINAL PAIN UPPER [None]
